FAERS Safety Report 4962398-5 (Version None)
Quarter: 2006Q2

REPORT INFORMATION
  Report Type: 
  Country: None (occurrence: None)
  Receive Date: 20060404
  Receipt Date: 20060227
  Transmission Date: 20061013
  Serious: Yes (Life-Threatening)
  Sender: FDA-Public Use
  Company Number: US-AMGEN-US170531

PATIENT
  Sex: Female
  Weight: 0.8 kg

DRUGS (8)
  1. NEUPOGEN [Suspect]
     Indication: NEUTROPENIA
     Route: 042
     Dates: start: 20060226, end: 20060226
  2. TPN [Concomitant]
     Route: 065
  3. FENTANYL [Concomitant]
     Route: 065
  4. INSULIN [Concomitant]
     Route: 065
  5. LASIX [Concomitant]
     Route: 065
  6. DOPAMINE [Concomitant]
     Route: 065
  7. INTRALIPID 10% [Concomitant]
  8. CAFFEINE [Concomitant]
     Route: 042
     Dates: start: 20060225

REACTIONS (14)
  - AIR EMBOLISM [None]
  - BRADYCARDIA [None]
  - BRADYCARDIA NEONATAL [None]
  - CARDIO-RESPIRATORY ARREST [None]
  - CHEST X-RAY ABNORMAL [None]
  - CYANOSIS [None]
  - CYANOSIS NEONATAL [None]
  - DYSKINESIA [None]
  - DYSKINESIA NEONATAL [None]
  - DYSPNOEA [None]
  - INFUSION RELATED REACTION [None]
  - RASH [None]
  - RASH NEONATAL [None]
  - SHOCK [None]
